FAERS Safety Report 10733410 (Version 2)
Quarter: 2015Q1

REPORT INFORMATION
  Report Type: Spontaneous
  Country: US (occurrence: None)
  Receive Date: 20150120
  Receipt Date: 20150326
  Transmission Date: 20150721
  Serious: Yes (Other)
  Sender: FDA-Public Use
  Company Number: 2014IHE00744

PATIENT
  Age: 78 Year
  Sex: Male
  Weight: 81.6 kg

DRUGS (5)
  1. AZO URINARY PAIN RELIEF [Suspect]
     Active Substance: PHENAZOPYRIDINE HYDROCHLORIDE
     Indication: DYSURIA
     Dosage: 2 TABLETS
     Route: 048
     Dates: start: 20141230
  2. AZO URINARY PAIN RELIEF [Suspect]
     Active Substance: PHENAZOPYRIDINE HYDROCHLORIDE
     Indication: URINARY TRACT INFECTION
     Dosage: 2 TABLETS
     Route: 048
     Dates: start: 20141230
  3. UNSPECIFIED MEDICATIONS [Concomitant]
     Active Substance: UNSPECIFIED INGREDIENT
  4. AZO URINARY PAIN RELIEF [Suspect]
     Active Substance: PHENAZOPYRIDINE HYDROCHLORIDE
     Indication: URINARY TRACT PAIN
     Dosage: 2 TABLETS
     Route: 048
     Dates: start: 20141230
  5. AZO URINARY PAIN RELIEF [Suspect]
     Active Substance: PHENAZOPYRIDINE HYDROCHLORIDE
     Indication: MICTURITION URGENCY
     Dosage: 2 TABLETS
     Route: 048
     Dates: start: 20141230

REACTIONS (1)
  - Urinary retention [None]

NARRATIVE: CASE EVENT DATE: 20141231
